FAERS Safety Report 8532674-8 (Version None)
Quarter: 2012Q3

REPORT INFORMATION
  Report Type: 
  Country: None (occurrence: None)
  Receive Date: 20120711
  Receipt Date: 20110525
  Transmission Date: 20120928
  Serious: No
  Sender: FDA-Public Use
  Company Number: 11-001

PATIENT
  Age: 49 Year
  Sex: Male

DRUGS (1)
  1. YELLOW JACKET PROTEIN VENOM [Suspect]
     Indication: RHINITIS ALLERGIC
     Dosage: 100MCG IN 1.0ML

REACTIONS (1)
  - URTICARIA [None]
